FAERS Safety Report 8426873-3 (Version None)
Quarter: 2012Q2

REPORT INFORMATION
  Report Type: 
  Country: None (occurrence: None)
  Receive Date: 20120611
  Receipt Date: 20120531
  Transmission Date: 20120825
  Serious: Yes (Life-Threatening)
  Sender: FDA-Public Use
  Company Number: SE-JNJFOC-20120601433

PATIENT
  Age: 73 Year
  Sex: Female

DRUGS (9)
  1. KALCIPOS D [Concomitant]
     Route: 065
  2. REMICADE [Suspect]
     Indication: CROHN'S DISEASE
     Route: 042
     Dates: start: 20101118, end: 20110616
  3. IMURAN [Suspect]
     Indication: CROHN'S DISEASE
     Route: 065
  4. RAMIPRIL [Concomitant]
     Route: 065
  5. CALCIUM CARBONATE [Concomitant]
     Route: 065
  6. OMEPRAZOLE [Concomitant]
     Route: 065
  7. PREDNISOLONE [Concomitant]
     Route: 065
  8. METOPROLOL TARTRATE [Concomitant]
     Route: 065
  9. CHOLECALCIFEROL [Concomitant]
     Route: 065

REACTIONS (3)
  - PERICARDITIS [None]
  - MYALGIA [None]
  - ARTHRALGIA [None]
